FAERS Safety Report 5887071-0 (Version None)
Quarter: 2008Q3

REPORT INFORMATION
  Report Type: 
  Country: None (occurrence: None)
  Receive Date: 20080915
  Receipt Date: 20080901
  Transmission Date: 20090109
  Serious: Yes (Other)
  Sender: FDA-Public Use
  Company Number: 1000000874

PATIENT
  Age: 23 Year

DRUGS (1)
  1. CITALOPRAM HYDROBROMIDE [Suspect]
     Dosage: (400 MG,ONCE), ORAL
     Route: 048
     Dates: start: 20060101, end: 20060101

REACTIONS (4)
  - CONVULSION [None]
  - INTENTIONAL OVERDOSE [None]
  - SOMNOLENCE [None]
  - SUICIDE ATTEMPT [None]
